FAERS Safety Report 9902879 (Version 1)
Quarter: 2014Q1

REPORT INFORMATION
  Report Type: Spontaneous
  Country: FR (occurrence: FR)
  Receive Date: 20140217
  Receipt Date: 20140217
  Transmission Date: 20141002
  Serious: Yes (Other)
  Sender: FDA-Public Use
  Company Number: PHHY2014FR014041

PATIENT
  Sex: Female
  Weight: 2.23 kg

DRUGS (4)
  1. CICLOSPORIN [Suspect]
     Indication: IMMUNOSUPPRESSION
     Dosage: MATERNAL DOSE: 480 MG, DAILY
     Route: 064
  2. CICLOSPORIN [Suspect]
     Dosage: MATERNAL DOSE: 510 MG, DAILY IN 3 DOSES
     Route: 064
  3. AZATHIOPRINE [Suspect]
     Indication: IMMUNOSUPPRESSION
     Dosage: MATERNAL DOSE: 75 MG, UNK
     Route: 064
  4. PREDNISONE [Suspect]
     Indication: IMMUNOSUPPRESSION
     Dosage: MATERNAL DOSE: 15 MG
     Route: 064

REACTIONS (3)
  - Low birth weight baby [Unknown]
  - Premature baby [Unknown]
  - Foetal exposure during pregnancy [Unknown]
